FAERS Safety Report 4729896-0 (Version None)
Quarter: 2005Q3

REPORT INFORMATION
  Report Type: 
  Country: None (occurrence: None)
  Receive Date: 20050728
  Receipt Date: 20050714
  Transmission Date: 20060218
  Serious: Yes (Life-Threatening, Hospitalization)
  Sender: FDA-Public Use
  Company Number: 200510994BWH

PATIENT
  Age: 74 Year
  Sex: Female
  Weight: 67.1324 kg

DRUGS (1)
  1. TRASYLOL [Suspect]
     Indication: MITRAL VALVE REPLACEMENT
     Dosage: 20000000 U TOTAL DAILY

REACTIONS (18)
  - ACTIVATED PARTIAL THROMBOPLASTIN TIME ABNORMAL [None]
  - ANAPHYLACTIC REACTION [None]
  - ATRIAL FIBRILLATION [None]
  - BRADYCARDIA [None]
  - CARDIAC ARREST [None]
  - CARDIAC OUTPUT DECREASED [None]
  - EJECTION FRACTION DECREASED [None]
  - HAEMATOMA [None]
  - HAEMOGLOBIN DECREASED [None]
  - HAEMOTHORAX [None]
  - HYPOTENSION [None]
  - NO THERAPEUTIC RESPONSE [None]
  - OFF LABEL USE [None]
  - PLEURAL EFFUSION [None]
  - POST PROCEDURAL COMPLICATION [None]
  - PROCEDURAL COMPLICATION [None]
  - RETROPERITONEAL HAEMORRHAGE [None]
  - VENTRICULAR DYSFUNCTION [None]
